FAERS Safety Report 12384709 (Version 8)
Quarter: 2016Q3

REPORT INFORMATION
  Report Type: Spontaneous
  Country: US (occurrence: US)
  Receive Date: 20160519
  Receipt Date: 20160923
  Transmission Date: 20161109
  Serious: Yes (Hospitalization, Other)
  Sender: FDA-Public Use
  Company Number: US-PFIZER INC-2016254470

PATIENT
  Age: 51 Year
  Sex: Male
  Weight: 111 kg

DRUGS (8)
  1. SUTENT [Suspect]
     Active Substance: SUNITINIB MALATE
     Indication: GASTROINTESTINAL STROMAL TUMOUR
     Dosage: 50 MG, CYCLIC (28 DAYS ON/14 DAYS OFF)
     Dates: start: 20160328
  2. COUMADIN [Concomitant]
     Active Substance: WARFARIN SODIUM
     Dosage: UNK
  3. FOSAMAX [Concomitant]
     Active Substance: ALENDRONATE SODIUM
     Dosage: UNK
  4. BABY ASPIRIN [Concomitant]
     Active Substance: ASPIRIN
     Dosage: UNK
  5. LUNESTA [Concomitant]
     Active Substance: ESZOPICLONE
     Dosage: UNK
  6. SUTENT [Suspect]
     Active Substance: SUNITINIB MALATE
     Dosage: UNK
     Dates: start: 20160620, end: 20160622
  7. PRILOSEC [Concomitant]
     Active Substance: OMEPRAZOLE MAGNESIUM
     Dosage: UNK
  8. CITRACAL-D [Concomitant]
     Dosage: UNK

REACTIONS (34)
  - Haemorrhage [Recovered/Resolved]
  - Gastrooesophageal reflux disease [Unknown]
  - Tongue disorder [Unknown]
  - White blood cell count decreased [Unknown]
  - Yellow skin [Unknown]
  - Ocular icterus [Unknown]
  - Decreased appetite [Unknown]
  - Osteoporosis [Unknown]
  - Abdominal pain [Unknown]
  - Dry skin [Recovering/Resolving]
  - Disease progression [Unknown]
  - Malaise [Unknown]
  - Insomnia [Unknown]
  - Chromaturia [Unknown]
  - Faeces discoloured [Recovered/Resolved]
  - Dysgeusia [Recovering/Resolving]
  - Liver function test increased [Not Recovered/Not Resolved]
  - Feeling of body temperature change [Unknown]
  - Feeling hot [Unknown]
  - Arthralgia [Unknown]
  - Gastrointestinal stromal tumour [Unknown]
  - Skin fissures [Unknown]
  - Pain in extremity [Unknown]
  - Hyperkeratosis [Unknown]
  - Alopecia [Unknown]
  - Hypertension [Unknown]
  - Haematocrit decreased [Not Recovered/Not Resolved]
  - Faeces pale [Unknown]
  - Occult blood positive [Unknown]
  - Constipation [Unknown]
  - Jaundice [Unknown]
  - Flank pain [Not Recovered/Not Resolved]
  - Pain [Unknown]
  - Fatigue [Unknown]

NARRATIVE: CASE EVENT DATE: 20160604
